FAERS Safety Report 14743192 (Version 1)
Quarter: 2018Q2

REPORT INFORMATION
  Report Type: Other
  Country: ES (occurrence: ES)
  Receive Date: 20180410
  Receipt Date: 20180410
  Transmission Date: 20180711
  Serious: Yes (Hospitalization)
  Sender: FDA-Public Use
  Company Number: ES-VALIDUS PHARMACEUTICALS LLC-ES-2018VAL000627

PATIENT
  Age: 77 Year
  Sex: Male

DRUGS (8)
  1. FUROSEMIDE. [Suspect]
     Active Substance: FUROSEMIDE
     Indication: URINARY RETENTION
     Dosage: 500 MG, EVERY 12 HOURS
     Route: 048
     Dates: start: 20180305, end: 20180309
  2. ANAGRELIDA [Concomitant]
     Indication: PRODUCT USED FOR UNKNOWN INDICATION
     Dosage: UNK
     Dates: start: 20160920
  3. TERBASMIN                          /00199202/ [Concomitant]
     Indication: PRODUCT USED FOR UNKNOWN INDICATION
     Dosage: UNK
     Dates: start: 20160520
  4. RAMIPRIL NORMON [Concomitant]
     Indication: PRODUCT USED FOR UNKNOWN INDICATION
     Dosage: UNK
  5. OMEPRAZOLE. [Concomitant]
     Active Substance: OMEPRAZOLE
     Indication: PRODUCT USED FOR UNKNOWN INDICATION
     Dosage: UNK
  6. MASDIL [Concomitant]
     Active Substance: DILTIAZEM HYDROCHLORIDE
     Indication: PRODUCT USED FOR UNKNOWN INDICATION
     Dosage: UNK
  7. SINTROM [Suspect]
     Active Substance: ACENOCOUMAROL
     Indication: ATRIAL FLUTTER
     Dosage: UNK
     Route: 048
     Dates: start: 20180118, end: 20180309
  8. COMBIPRASAL [Concomitant]
     Active Substance: ALBUTEROL SULFATE\IPRATROPIUM BROMIDE
     Indication: PRODUCT USED FOR UNKNOWN INDICATION
     Dosage: UNK
     Dates: start: 20180221

REACTIONS (2)
  - Rectal ulcer [Recovered/Resolved]
  - Drug interaction [Unknown]

NARRATIVE: CASE EVENT DATE: 20180308
